FAERS Safety Report 8115585-1 (Version None)
Quarter: 2012Q1

REPORT INFORMATION
  Report Type: 
  Country: None (occurrence: None)
  Receive Date: 20120201
  Receipt Date: 20120119
  Transmission Date: 20120608
  Serious: Yes (Death, Hospitalization)
  Sender: FDA-Public Use
  Company Number: UTC-014790

PATIENT
  Age: 58 Year
  Sex: Female
  Weight: 109 kg

DRUGS (1)
  1. REMODULIN [Suspect]
     Indication: HYPERTENSION
     Dosage: 47.52 UG/KG (0.033 UG/KG, 1 IN 1  MIN), SUBCUTANEOUS
     Route: 058
     Dates: start: 20111019

REACTIONS (1)
  - DEATH [None]
